FAERS Safety Report 6148746-1 (Version None)
Quarter: 2009Q2

REPORT INFORMATION
  Report Type: 
  Country: None (occurrence: None)
  Receive Date: 20090406
  Receipt Date: 20090406
  Transmission Date: 20091009
  Serious: Yes (Hospitalization)
  Sender: FDA-Public Use
  Company Number: None

PATIENT

DRUGS (1)
  1. BEVACIZUMAB [Suspect]
     Indication: MACULAR DEGENERATION
     Dosage: 1.25 MG ONCE EYE
     Route: 047
     Dates: start: 20090320, end: 20090320

REACTIONS (4)
  - BLINDNESS [None]
  - ENDOPHTHALMITIS [None]
  - MEDICATION ERROR [None]
  - STAPHYLOCOCCAL INFECTION [None]
